FAERS Safety Report 14816665 (Version 1)
Quarter: 2018Q2

REPORT INFORMATION
  Report Type: Spontaneous
  Country: ZA (occurrence: ZA)
  Receive Date: 20180426
  Receipt Date: 20180426
  Transmission Date: 20180711
  Serious: Yes (Other)
  Sender: FDA-Public Use
  Company Number: ZA-PFIZER INC-2018166264

PATIENT
  Age: 80 Year
  Sex: Male

DRUGS (9)
  1. ECOTRIN [Suspect]
     Active Substance: ASPIRIN
     Dosage: 81 MG, UNK
  2. PEARINDA PLUS [Suspect]
     Active Substance: INDAPAMIDE\PERINDOPRIL
     Dosage: UNK
  3. CIPALAT RETARD [Suspect]
     Active Substance: NIFEDIPINE
     Dosage: 20 MG, UNK
  4. ATERAX [Suspect]
     Active Substance: HYDROXYZINE HYDROCHLORIDE
     Dosage: 25 MG, UNK
  5. GLYCOMIN /00082702/ [Suspect]
     Active Substance: METFORMIN HYDROCHLORIDE
     Dosage: 5 MG, UNK
  6. LANCAP [Suspect]
     Active Substance: LANSOPRAZOLE
     Dosage: 15 MG, UNK
  7. MYLAN METFORMIN [Suspect]
     Active Substance: METFORMIN HYDROCHLORIDE
     Dosage: 850 MG, UNK
  8. ASPAVOR [Suspect]
     Active Substance: ATORVASTATIN
     Dosage: 20 MG, UNK
  9. TAMSUL [Suspect]
     Active Substance: TAMSULOSIN HYDROCHLORIDE
     Dosage: 0.4 UNK, UNK

REACTIONS (1)
  - Colon cancer [Unknown]
